FAERS Safety Report 6510101-X (Version None)
Quarter: 2009Q4

REPORT INFORMATION
  Report Type: 
  Country: None (occurrence: None)
  Receive Date: 20091222
  Receipt Date: 20091030
  Transmission Date: 20100525
  Serious: No
  Sender: FDA-Public Use
  Company Number: US-BAUSCH-2009BL005473

PATIENT
  Age: 62 Year
  Sex: Female

DRUGS (2)
  1. ALAWAY [Suspect]
     Indication: EYE PRURITUS
     Route: 047
     Dates: start: 20091027, end: 20091029
  2. ALAWAY [Suspect]
     Indication: LACRIMATION INCREASED
     Route: 047
     Dates: start: 20091027, end: 20091029

REACTIONS (1)
  - INFLUENZA LIKE ILLNESS [None]
